FAERS Safety Report 5787296-9 (Version None)
Quarter: 2008Q2

REPORT INFORMATION
  Report Type: 
  Country: None (occurrence: None)
  Receive Date: 20080625
  Receipt Date: 20080612
  Transmission Date: 20081010
  Serious: Yes (Hospitalization)
  Sender: FDA-Public Use
  Company Number: CH-WYE-H04452008

PATIENT
  Age: 42 Year
  Sex: Female
  Weight: 77 kg

DRUGS (6)
  1. EFFEXOR [Suspect]
     Indication: DEPRESSION
  2. EFFEXOR [Interacting]
  3. EFFEXOR [Interacting]
  4. FLUOXETINE HCL [Interacting]
     Indication: DEPRESSION
  5. MIRTAZAPINE [Concomitant]
     Indication: DYSTHYMIC DISORDER
  6. VALPROIC ACID [Concomitant]

REACTIONS (4)
  - DRUG EFFECT DECREASED [None]
  - DRUG INTERACTION [None]
  - DRUG LEVEL INCREASED [None]
  - ECZEMA [None]
